FAERS Safety Report 4380814-7 (Version None)
Quarter: 2004Q2

REPORT INFORMATION
  Report Type: 
  Country: None (occurrence: None)
  Receive Date: 20040616
  Receipt Date: 20040607
  Transmission Date: 20050107
  Serious: Yes (Other)
  Sender: FDA-Public Use
  Company Number: 2004037900

PATIENT
  Sex: 0

DRUGS (2)
  1. NORVASC [Suspect]
     Indication: HYPERTENSION
     Dosage: 2.5 MG (1 D), ORAL
     Route: 048
  2. DIURETICS (DIURETICS) [Concomitant]

REACTIONS (7)
  - BLOOD PRESSURE FLUCTUATION [None]
  - EPISTAXIS [None]
  - HYPERTENSION [None]
  - MENTAL DISORDER [None]
  - RETINAL HAEMORRHAGE [None]
  - TINNITUS [None]
  - TREATMENT NONCOMPLIANCE [None]
